FAERS Safety Report 5285571-8 (Version None)
Quarter: 2007Q1

REPORT INFORMATION
  Report Type: 
  Country: None (occurrence: None)
  Receive Date: 20061229
  Receipt Date: 20061018
  Transmission Date: 20070707
  Serious: Yes (Other)
  Sender: FDA-Public Use
  Company Number: 2006UW20128

PATIENT
  Age: 69 Year
  Sex: Female
  Weight: 90.718 kg

DRUGS (4)
  1. CRESTOR [Suspect]
     Indication: BLOOD CHOLESTEROL INCREASED
     Dosage: 5 MG PO
     Route: 048
  2. HYZAAR [Concomitant]
  3. ASPIRIN [Concomitant]
  4. PREMARIN [Concomitant]

REACTIONS (3)
  - DYSURIA [None]
  - MICTURITION URGENCY [None]
  - URINE ABNORMALITY [None]
